FAERS Safety Report 4643841-8 (Version None)
Quarter: 2005Q2

REPORT INFORMATION
  Report Type: 
  Country: None (occurrence: None)
  Receive Date: 20050425
  Receipt Date: 20050414
  Transmission Date: 20051028
  Serious: Yes (Other)
  Sender: FDA-Public Use
  Company Number: US-KINGPHARMUSA00001-K200500495

PATIENT
  Age: 48 Year
  Sex: Male

DRUGS (6)
  1. ALTACE [Suspect]
     Indication: HYPERTENSION
     Dosage: 5 MG, QD
     Route: 048
  2. LANTUS [Suspect]
     Indication: HYPERGLYCAEMIA
     Dates: start: 20041019, end: 20041120
  3. HUMALOG PEN [Concomitant]
     Dosage: UNK, TID
  4. ACE INHIBITOR NOS [Concomitant]
  5. INSULIN ISOPHANE, HUMAN BIOSYNTHETIC [Concomitant]
  6. SARTANIC [Concomitant]

REACTIONS (7)
  - ARTHRALGIA [None]
  - HYPOGLYCAEMIA [None]
  - HYPOGLYCAEMIA UNAWARENESS [None]
  - LARYNGEAL OEDEMA [None]
  - MALAISE [None]
  - PAIN IN EXTREMITY [None]
  - VERTIGO [None]
